FAERS Safety Report 4684785-5 (Version None)
Quarter: 2005Q2

REPORT INFORMATION
  Report Type: 
  Country: None (occurrence: None)
  Receive Date: 20050606
  Receipt Date: 20050425
  Transmission Date: 20051028
  Serious: No
  Sender: FDA-Public Use
  Company Number: USA050496496

PATIENT
  Sex: Female

DRUGS (4)
  1. ALIMTA [Suspect]
     Dates: start: 20050401
  2. VITAMIN B-12 [Concomitant]
  3. DEXAMETHASONE [Concomitant]
  4. FOLIC ACID [Concomitant]

REACTIONS (1)
  - RASH GENERALISED [None]
